FAERS Safety Report 5602847-2 (Version None)
Quarter: 2008Q1

REPORT INFORMATION
  Report Type: 
  Country: None (occurrence: None)
  Receive Date: 20080125
  Receipt Date: 20080118
  Transmission Date: 20080703
  Serious: Yes (Death, Hospitalization, Other)
  Sender: FDA-Public Use
  Company Number: GB-ABBOTT-06P-167-0352841-00

PATIENT
  Age: 33 Year
  Sex: Male
  Weight: 175 kg

DRUGS (5)
  1. SIBUTRAMINE [Suspect]
     Indication: OBESITY
     Route: 048
     Dates: start: 20060925, end: 20061012
  2. AZITHROMYCIN [Concomitant]
     Indication: LOWER RESPIRATORY TRACT INFECTION
     Route: 048
     Dates: start: 20060925, end: 20060930
  3. CEFACLOR [Concomitant]
     Indication: LOWER RESPIRATORY TRACT INFECTION
     Route: 048
     Dates: start: 20060918, end: 20060925
  4. CLARITHROMYCIN [Concomitant]
     Indication: LOWER RESPIRATORY TRACT INFECTION
     Route: 048
     Dates: start: 20060901, end: 20060908
  5. PREDNISOLONE [Concomitant]
     Indication: WHEEZING
     Route: 048
     Dates: start: 20060918, end: 20060923

REACTIONS (13)
  - ABDOMINAL PAIN UPPER [None]
  - AORTIC DILATATION [None]
  - AORTIC RUPTURE [None]
  - CARDIAC ARREST [None]
  - CARDIAC TAMPONADE [None]
  - CHEST PAIN [None]
  - CONNECTIVE TISSUE DISORDER [None]
  - DIFFUSE VASCULITIS [None]
  - DYSPNOEA [None]
  - PERICARDIAL EFFUSION [None]
  - PERICARDIAL HAEMORRHAGE [None]
  - PLEURAL EFFUSION [None]
  - PLEURITIC PAIN [None]
